FAERS Safety Report 8803777 (Version 2)
Quarter: 2012Q4

REPORT INFORMATION
  Report Type: Report from Study
  Country: ES (occurrence: ES)
  Receive Date: 20120923
  Receipt Date: 20121008
  Transmission Date: 20130627
  Serious: Yes (Hospitalization)
  Sender: FDA-Public Use
  Company Number: ES-AMGEN-ESPCT2012059477

PATIENT
  Age: 64 Year
  Sex: Male

DRUGS (2)
  1. PANITUMUMAB [Suspect]
     Indication: COLORECTAL CANCER METASTATIC
     Dosage: UNK UNK, q2wk
     Route: 042
     Dates: start: 20120419
  2. IRINOTECAN [Concomitant]
     Indication: COLORECTAL CANCER METASTATIC
     Dosage: UNK UNK, q2wk
     Route: 042
     Dates: start: 20120419

REACTIONS (2)
  - Keratoplasty [Unknown]
  - Keratitis [Recovered/Resolved]
